FAERS Safety Report 12226067 (Version 1)
Quarter: 2016Q1

REPORT INFORMATION
  Report Type: Spontaneous
  Country: JP (occurrence: JP)
  Receive Date: 20160331
  Receipt Date: 20160331
  Transmission Date: 20160526
  Serious: Yes (Death, Hospitalization, Other)
  Sender: FDA-Public Use
  Company Number: JP-VIFOR (INTERNATIONAL) INC.-VIT-2016-01478

PATIENT
  Age: 89 Year
  Sex: Female

DRUGS (9)
  1. MAINTATE [Concomitant]
     Active Substance: BISOPROLOL FUMARATE
     Indication: PROPHYLAXIS
     Route: 048
     Dates: start: 20140329, end: 20140329
  2. VASOLAN [Concomitant]
     Active Substance: VERAPAMIL HYDROCHLORIDE
     Indication: PROPHYLAXIS
     Route: 048
     Dates: start: 20140314, end: 20140329
  3. KREMEZIN [Concomitant]
     Active Substance: ACTIVATED CHARCOAL
     Route: 048
     Dates: end: 20140329
  4. CRESTOR [Concomitant]
     Active Substance: ROSUVASTATIN CALCIUM
     Route: 048
     Dates: end: 20140329
  5. PLETAAL [Concomitant]
     Active Substance: CILOSTAZOL
     Route: 048
     Dates: start: 20140329
  6. EPADEL [Concomitant]
     Active Substance: ICOSAPENT
     Route: 048
     Dates: end: 20140329
  7. MIRCERA [Suspect]
     Active Substance: METHOXY POLYETHYLENE GLYCOL-EPOETIN BETA
     Indication: NEPHROGENIC ANAEMIA
     Route: 058
     Dates: start: 20130904, end: 20140225
  8. CALBLOCK [Concomitant]
     Active Substance: AZELNIDIPINE
     Route: 048
     Dates: start: 20140329
  9. LASIX [Concomitant]
     Active Substance: FUROSEMIDE
     Route: 048
     Dates: end: 20140329

REACTIONS (21)
  - Heart rate decreased [Unknown]
  - Sepsis [Fatal]
  - Hyperphosphataemia [Unknown]
  - Cardiac failure [Not Recovered/Not Resolved]
  - Pyrexia [Fatal]
  - Pulmonary congestion [Unknown]
  - Melaena [Unknown]
  - Cytomegalovirus test positive [Unknown]
  - General physical health deterioration [Unknown]
  - Blood pressure decreased [Unknown]
  - Diarrhoea [Unknown]
  - Hyperkalaemia [Unknown]
  - Gastrointestinal necrosis [Unknown]
  - Abdominal pain [Unknown]
  - Fluid overload [Unknown]
  - Haematochezia [Recovered/Resolved]
  - Pleural effusion [Unknown]
  - Pneumonia [Recovering/Resolving]
  - Rectal haemorrhage [Unknown]
  - Aortic aneurysm [Unknown]
  - Rectal ulcer haemorrhage [Unknown]

NARRATIVE: CASE EVENT DATE: 2014
